FAERS Safety Report 10461910 (Version 1)
Quarter: 2014Q3

REPORT INFORMATION
  Report Type: Spontaneous
  Country: US (occurrence: None)
  Receive Date: 20140916
  Receipt Date: 20140916
  Transmission Date: 20150326
  Serious: Yes (Hospitalization, Other)
  Sender: FDA-Public Use
  Company Number: 2009S1006390

PATIENT
  Age: 66 Year
  Sex: Female

DRUGS (5)
  1. GLYBURIDE (GLIBENCLAMIDE) [Concomitant]
     Active Substance: GLYBURIDE
  2. SULAR (NISOLDIPINE) [Concomitant]
  3. AVANDIA (ROSIGLITAZONE MALEATE) [Concomitant]
  4. PHOSPHO-SODA [Suspect]
     Active Substance: SODIUM PHOSPHATE, DIBASIC\SODIUM PHOSPHATE, MONOBASIC
     Indication: COLONOSCOPY
     Dates: start: 20051109, end: 20051110
  5. DIOVAN [Concomitant]
     Active Substance: VALSARTAN

REACTIONS (27)
  - Helicobacter gastritis [None]
  - Hepatic cirrhosis [None]
  - Haemorrhoids [None]
  - Renal osteodystrophy [None]
  - Nephrogenic anaemia [None]
  - Nausea [None]
  - Dehydration [None]
  - Renal tubular necrosis [None]
  - Cholecystitis acute [None]
  - Renal cancer [None]
  - Metabolic acidosis [None]
  - Malaise [None]
  - Metaplasia [None]
  - Nephrosclerosis [None]
  - Blood parathyroid hormone increased [None]
  - Renal failure chronic [None]
  - Ascites [None]
  - Pyrexia [None]
  - Cough [None]
  - Arteriovenous malformation [None]
  - Acute phosphate nephropathy [None]
  - Decreased appetite [None]
  - Carotid artery stenosis [None]
  - Umbilical hernia [None]
  - Coronary artery disease [None]
  - Renal failure acute [None]
  - Hypertension [None]

NARRATIVE: CASE EVENT DATE: 20051220
